FAERS Safety Report 6409925-9 (Version None)
Quarter: 2009Q4

REPORT INFORMATION
  Report Type: 
  Country: None (occurrence: None)
  Receive Date: 20091021
  Receipt Date: 20091021
  Transmission Date: 20100525
  Serious: Yes (Life-Threatening, Other)
  Sender: FDA-Public Use
  Company Number: None

PATIENT
  Age: 49 Year
  Sex: Female
  Weight: 74.8435 kg

DRUGS (1)
  1. ALBILIFY [Suspect]

REACTIONS (6)
  - CONFUSIONAL STATE [None]
  - EPISTAXIS [None]
  - EYE INJURY [None]
  - FALL [None]
  - MUSCLE SPASMS [None]
  - SOMNOLENCE [None]
